FAERS Safety Report 9490683 (Version 1)
Quarter: 2013Q3

REPORT INFORMATION
  Report Type: Spontaneous
  Country: US (occurrence: US)
  Receive Date: 20130830
  Receipt Date: 20130830
  Transmission Date: 20140515
  Serious: No
  Sender: FDA-Public Use
  Company Number: US-BAYER-2013-100638

PATIENT
  Age: 30 Year
  Sex: Female

DRUGS (3)
  1. HELIXATE FS [Suspect]
     Indication: FACTOR VIII DEFICIENCY
     Dosage: 30 IU/KG, ONCE OR TWICE PER WEEK
     Route: 042
  2. HELIXATE FS [Suspect]
     Indication: FACTOR VIII DEFICIENCY
     Dosage: 50 IU, ONCE WHEN LABOR BEGAN
     Route: 042
  3. HELIXATE FS [Suspect]
     Indication: FACTOR VIII DEFICIENCY
     Dosage: 3 IU, CONTINUOUS INFUSION DURING LABOR AND DELIVERY AND NEXT 48 HOURS
     Route: 042

REACTIONS (1)
  - Maternal exposure during pregnancy [None]
